FAERS Safety Report 18887200 (Version 3)
Quarter: 2021Q2

REPORT INFORMATION
  Report Type: Report from Study
  Country: US (occurrence: US)
  Receive Date: 20210212
  Receipt Date: 20210528
  Transmission Date: 20210717
  Serious: Yes (Other)
  Sender: FDA-Public Use
  Company Number: US-TAKEDA-2021TUS007592

PATIENT
  Sex: Female
  Weight: 63 kg

DRUGS (22)
  1. DULCOLAX (BISACODYL) [Concomitant]
     Active Substance: BISACODYL
  2. CALCIUM [Concomitant]
     Active Substance: CALCIUM
  3. LEVOTHYROXINE. [Concomitant]
     Active Substance: LEVOTHYROXINE
  4. CUVITRU [Suspect]
     Active Substance: HUMAN IMMUNOGLOBULIN G
     Indication: IMMUNODEFICIENCY COMMON VARIABLE
     Dosage: 70 GRAM, Q4WEEKS
     Route: 042
     Dates: start: 20190703
  5. FENTANYL. [Concomitant]
     Active Substance: FENTANYL
  6. AUGMENTINE [AMOXICILLIN;CLAVULANIC ACID] [Concomitant]
     Active Substance: AMOXICILLIN\CLAVULANIC ACID
  7. DIPHENHYDRAMINE. [Concomitant]
     Active Substance: DIPHENHYDRAMINE
  8. LIDOCAINE. [Concomitant]
     Active Substance: LIDOCAINE
  9. PREDNISONE. [Concomitant]
     Active Substance: PREDNISONE
  10. MAGNESIUM [Concomitant]
     Active Substance: MAGNESIUM
  11. HIBICLENS [Concomitant]
     Active Substance: CHLORHEXIDINE GLUCONATE
  12. SIMVASTATIN. [Concomitant]
     Active Substance: SIMVASTATIN
  13. ACETAMINOPHEN. [Concomitant]
     Active Substance: ACETAMINOPHEN
  14. SODIUM CHLORIDE. [Concomitant]
     Active Substance: SODIUM CHLORIDE
  15. TAMIFLU [Concomitant]
     Active Substance: OSELTAMIVIR PHOSPHATE
  16. TUMS [Concomitant]
     Active Substance: CALCIUM CARBONATE
  17. AUGMENTIN [Concomitant]
     Active Substance: AMOXICILLIN\CLAVULANATE POTASSIUM
  18. VITAMINS NOS [Concomitant]
     Active Substance: VITAMINS
  19. HYDROXYCHLOROQUINE [Concomitant]
     Active Substance: HYDROXYCHLOROQUINE
  20. EPINEPHRINE. [Concomitant]
     Active Substance: EPINEPHRINE
  21. ACETAMINOPHEN;OXYCODONE HYDROCHLORIDE [Concomitant]
     Active Substance: ACETAMINOPHEN\OXYCODONE HYDROCHLORIDE
  22. REFRESH CELLUVISC [Concomitant]
     Active Substance: CARBOXYMETHYLCELLULOSE SODIUM

REACTIONS (4)
  - Brain neoplasm [Unknown]
  - Urinary tract infection [Unknown]
  - Illness [Unknown]
  - Sinusitis [Unknown]
